FAERS Safety Report 9942389 (Version 2)
Quarter: 2015Q2

REPORT INFORMATION
  Report Type: Spontaneous
  Country: FR (occurrence: FR)
  Receive Date: 20140303
  Receipt Date: 20150407
  Transmission Date: 20150821
  Serious: Yes (Hospitalization)
  Sender: FDA-Public Use
  Company Number: FR-TEVA-464336ISR

PATIENT
  Age: 58 Year
  Sex: Male

DRUGS (3)
  1. ACETAMINOPHEN AND CODEINE [Suspect]
     Active Substance: ACETAMINOPHEN\CODEINE PHOSPHATE
     Indication: NECK PAIN
     Dosage: 3 DOSAGE FORMS DAILY;
     Route: 048
     Dates: start: 20140117, end: 20140128
  2. NAPROXENE SODIQUE TEVA [Suspect]
     Active Substance: NAPROXEN SODIUM
     Indication: NECK PAIN
     Dosage: 550 MILLIGRAM DAILY;
     Route: 048
     Dates: start: 20140117, end: 20140128
  3. COTRIATEC 5 MG/ 12.5 MG [Concomitant]
     Dosage: 2 DOSAGE FORMS DAILY;
     Dates: start: 20140110

REACTIONS (3)
  - Pancreatitis [Recovered/Resolved]
  - Hyperlipasaemia [Unknown]
  - Abdominal pain [Unknown]

NARRATIVE: CASE EVENT DATE: 20140125
